FAERS Safety Report 22269246 (Version 1)
Quarter: 2023Q2

REPORT INFORMATION
  Report Type: Spontaneous
  Country: CA (occurrence: CA)
  Receive Date: 20230501
  Receipt Date: 20230501
  Transmission Date: 20230721
  Serious: Yes (Death, Hospitalization, Other)
  Sender: FDA-Public Use
  Company Number: CA-SAMSUNG BIOEPIS-SB-2023-10875

PATIENT
  Age: 92 Year
  Sex: Female
  Weight: 59 kg

DRUGS (2)
  1. INFLIXIMAB [Suspect]
     Active Substance: INFLIXIMAB
     Indication: Crohn^s disease
     Route: 042
  2. INFLIXIMAB [Suspect]
     Active Substance: INFLIXIMAB
     Route: 042

REACTIONS (9)
  - Death [Fatal]
  - Colitis ulcerative [Fatal]
  - Condition aggravated [Fatal]
  - Heart rate increased [Fatal]
  - Malaise [Fatal]
  - Pneumonia [Fatal]
  - Pollakiuria [Fatal]
  - Rectal haemorrhage [Fatal]
  - Inappropriate schedule of product administration [Fatal]
